FAERS Safety Report 7602936-7 (Version None)
Quarter: 2011Q3

REPORT INFORMATION
  Report Type: 
  Country: None (occurrence: None)
  Receive Date: 20110711
  Receipt Date: 20110711
  Transmission Date: 20111222
  Serious: Yes (Other)
  Sender: FDA-Public Use
  Company Number: None

PATIENT
  Age: 43 Year
  Sex: Female
  Weight: 79.3795 kg

DRUGS (1)
  1. TOPAMAX [Suspect]
     Indication: POST-TRAUMATIC STRESS DISORDER
     Dosage: 100 MG 2X DAY PO
     Route: 048
     Dates: start: 20101110, end: 20110706

REACTIONS (5)
  - WEIGHT DECREASED [None]
  - STRESS [None]
  - SKIN EXFOLIATION [None]
  - PRURITUS [None]
  - ALOPECIA [None]
